FAERS Safety Report 6060738-X (Version None)
Quarter: 2009Q1

REPORT INFORMATION
  Report Type: 
  Country: None (occurrence: None)
  Receive Date: 20090130
  Receipt Date: 20090130
  Transmission Date: 20090719
  Serious: Yes (Disabling, Other)
  Sender: FDA-Public Use
  Company Number: None

PATIENT
  Sex: Male
  Weight: 68.0396 kg

DRUGS (1)
  1. LEVAQUIN [Suspect]
     Indication: PROSTATITIS
     Dosage: 500 MG DAILY ORALLY
     Route: 048
     Dates: start: 20080501, end: 20080701

REACTIONS (8)
  - HEART RATE IRREGULAR [None]
  - HEART VALVE INCOMPETENCE [None]
  - IMPAIRED HEALING [None]
  - MUSCLE INJURY [None]
  - SCIATIC NERVE NEUROPATHY [None]
  - TENDON INJURY [None]
  - TENDON RUPTURE [None]
  - TENDONITIS [None]
